FAERS Safety Report 7741397-4 (Version None)
Quarter: 2011Q3

REPORT INFORMATION
  Report Type: 
  Country: None (occurrence: None)
  Receive Date: 20110909
  Receipt Date: 20110902
  Transmission Date: 20111222
  Serious: Yes (Other)
  Sender: FDA-Public Use
  Company Number: US-SANOFI-AVENTIS-2011SA057754

PATIENT
  Age: 44 Year
  Sex: Female
  Weight: 54 kg

DRUGS (4)
  1. PLAQUENIL [Suspect]
     Dosage: 2 TABLETS IN AM
     Dates: start: 20090101
  2. CLARITIN [Concomitant]
  3. SUDAFED 12 HOUR [Concomitant]
  4. MULTI-VITAMINS [Concomitant]

REACTIONS (1)
  - THYROID CANCER [None]
